FAERS Safety Report 24624083 (Version 3)
Quarter: 2025Q1

REPORT INFORMATION
  Report Type: Spontaneous
  Country: DE (occurrence: DE)
  Receive Date: 20241115
  Receipt Date: 20250106
  Transmission Date: 20250408
  Serious: Yes (Hospitalization, Other)
  Sender: BAYER HEALTHCARE PHARMACEUTICALS INC.
  Company Number: DE-BAYER-2024A161822

PATIENT
  Age: 19 Year
  Sex: Male
  Weight: 66 kg

DRUGS (8)
  1. ADEMPAS [Suspect]
     Active Substance: RIOCIGUAT
     Indication: Pulmonary hypertension
  2. ADEMPAS [Suspect]
     Active Substance: RIOCIGUAT
     Indication: Pulmonary hypertension
     Dosage: 2.5 MG, TID
     Route: 048
     Dates: start: 202407
  3. SOTATERCEPT [Suspect]
     Active Substance: SOTATERCEPT
     Dates: start: 202407
  4. LASIX [Concomitant]
     Active Substance: FUROSEMIDE
  5. AMBRISENTAN [Concomitant]
     Active Substance: AMBRISENTAN
  6. TREPROSTINIL [Concomitant]
     Active Substance: TREPROSTINIL
     Route: 042
  7. TOREMIFENE [Concomitant]
     Active Substance: TOREMIFENE
  8. EPLERENONE [Concomitant]
     Active Substance: EPLERENONE

REACTIONS (2)
  - Pericardial effusion [Recovering/Resolving]
  - Right ventricular failure [None]

NARRATIVE: CASE EVENT DATE: 20240301
